FAERS Safety Report 6080955-2 (Version None)
Quarter: 2009Q1

REPORT INFORMATION
  Report Type: 
  Country: None (occurrence: None)
  Receive Date: 20090217
  Receipt Date: 20090211
  Transmission Date: 20090719
  Serious: No
  Sender: FDA-Public Use
  Company Number: US-B.I. PHARMACEUTICALS,INC./RIDGEFIELD-2009-BP-00966BP

PATIENT
  Sex: Female

DRUGS (10)
  1. SPIRIVA [Suspect]
     Indication: CHRONIC OBSTRUCTIVE PULMONARY DISEASE
     Dosage: 18MCG
     Route: 055
     Dates: start: 20070201
  2. SPIRIVA [Suspect]
     Indication: EMPHYSEMA
  3. COZAAR [Concomitant]
     Indication: HYPERTENSION
     Dosage: 50MG
     Route: 048
  4. PLAVIX [Concomitant]
     Indication: CEREBROVASCULAR ACCIDENT PROPHYLAXIS
     Dosage: 75MG
     Route: 048
     Dates: start: 20050101
  5. ADVAIR DISKUS 100/50 [Concomitant]
     Indication: CHRONIC OBSTRUCTIVE PULMONARY DISEASE
     Dosage: 2PUF
  6. HYDROCHLORIZIDE [Concomitant]
     Dosage: 50MG
  7. OSTEOPRIME ENZYMATIC SUPPLEMENT [Concomitant]
  8. SHAKLEE BASIC VITAMINS [Concomitant]
  9. CRYSTALLINE VIT B12 INJ [Concomitant]
     Route: 051
  10. TYLENOL REGULAR [Concomitant]

REACTIONS (3)
  - DIZZINESS [None]
  - DRUG INEFFECTIVE [None]
  - VERTIGO [None]
